FAERS Safety Report 21417728 (Version 2)
Quarter: 2022Q4

REPORT INFORMATION
  Report Type: Spontaneous
  Country: JP (occurrence: JP)
  Receive Date: 20221006
  Receipt Date: 20221213
  Transmission Date: 20230113
  Serious: Yes (Hospitalization)
  Sender: FDA-Public Use
  Company Number: JP-Eisai-202208539_LEN-HCC_P_1

PATIENT
  Sex: Male

DRUGS (5)
  1. LENVATINIB [Suspect]
     Active Substance: LENVATINIB
     Indication: Hepatocellular carcinoma
     Route: 048
     Dates: start: 20211110, end: 20211110
  2. LENVATINIB [Suspect]
     Active Substance: LENVATINIB
     Route: 048
     Dates: start: 20211111, end: 20211111
  3. LENVATINIB [Suspect]
     Active Substance: LENVATINIB
     Route: 048
     Dates: start: 20211112, end: 20211118
  4. LENVATINIB [Suspect]
     Active Substance: LENVATINIB
     Route: 048
     Dates: start: 20211125
  5. CILNIDIPINE [Concomitant]
     Active Substance: CILNIDIPINE
     Indication: Hypertension
     Dosage: DOSE AND FREQUENCY UNKNOWN
     Route: 065

REACTIONS (2)
  - Hepatic encephalopathy [Recovered/Resolved]
  - Hypertension [Unknown]

NARRATIVE: CASE EVENT DATE: 20210101
